FAERS Safety Report 5918297-5 (Version None)
Quarter: 2008Q4

REPORT INFORMATION
  Report Type: 
  Country: None (occurrence: None)
  Receive Date: 20081010
  Receipt Date: 20081002
  Transmission Date: 20090506
  Serious: Yes (Other)
  Sender: FDA-Public Use
  Company Number: 08H-163-0314997-00

PATIENT
  Age: 37 Year
  Sex: Male

DRUGS (2)
  1. HEPARIN SODIUM INJECTION [Suspect]
     Indication: ANTICOAGULANT THERAPY
     Dosage: 300 UNITS/HR, INFUSION; 80 UNITS/KG, ONCE, INTRAVENOUS BOLUS; 18 UNITS/KG/HR, CONTINUOUS INFUSION
  2. HEPARIN SODIUM INJECTION [Suspect]
     Indication: DEEP VEIN THROMBOSIS
     Dosage: 300 UNITS/HR, INFUSION; 80 UNITS/KG, ONCE, INTRAVENOUS BOLUS; 18 UNITS/KG/HR, CONTINUOUS INFUSION

REACTIONS (2)
  - DEEP VEIN THROMBOSIS [None]
  - HEPARIN-INDUCED THROMBOCYTOPENIA [None]
